FAERS Safety Report 12898853 (Version 2)
Quarter: 2016Q4

REPORT INFORMATION
  Report Type: Spontaneous
  Country: IT (occurrence: IT)
  Receive Date: 20161101
  Receipt Date: 20161109
  Transmission Date: 20170207
  Serious: Yes (Hospitalization)
  Sender: FDA-Public Use
  Company Number: IT-ROCHE-1847560

PATIENT
  Age: 67 Year
  Sex: Female

DRUGS (3)
  1. PERJETA [Suspect]
     Active Substance: PERTUZUMAB
     Indication: CHEMOTHERAPY
     Dosage: 420 MG -30 MG/ML - 1 VIAL
     Route: 042
     Dates: start: 20160608, end: 20160922
  2. HERCEPTIN [Suspect]
     Active Substance: TRASTUZUMAB
     Indication: CHEMOTHERAPY
     Dosage: 150 MG -1 VIAL FOR INTRAVENOUS USE
     Route: 042
     Dates: start: 20160608, end: 20160922
  3. PACLITAXEL. [Concomitant]
     Active Substance: PACLITAXEL
     Dosage: 6 MG/ML -1 GLASS VIAL CONTAINING 300 MG/50 ML
     Route: 042
     Dates: start: 20160608, end: 20160922

REACTIONS (2)
  - Heart rate decreased [Recovering/Resolving]
  - Ejection fraction decreased [Recovering/Resolving]

NARRATIVE: CASE EVENT DATE: 20160929
